FAERS Safety Report 7074648-2 (Version None)
Quarter: 2010Q4

REPORT INFORMATION
  Report Type: 
  Country: None (occurrence: None)
  Receive Date: 20101029
  Receipt Date: 20101025
  Transmission Date: 20110411
  Serious: Yes (Death)
  Sender: FDA-Public Use
  Company Number: A0889584A

PATIENT
  Sex: Female

DRUGS (15)
  1. AVANDAMET [Suspect]
     Indication: PRODUCT USED FOR UNKNOWN INDICATION
     Route: 048
     Dates: start: 20050101
  2. KETOSTERIL [Concomitant]
  3. LANTUS [Concomitant]
  4. SUPLENA [Concomitant]
  5. PUROSENIDA [Concomitant]
  6. METOCLOPRAMIDE [Concomitant]
  7. AMLODIPINE [Concomitant]
  8. FOLIC ACID [Concomitant]
  9. VITAMIN B COMPLEX CAP [Concomitant]
  10. OMEPRAZOLE [Concomitant]
  11. EPOGEN [Concomitant]
  12. ACETAZOLAMIDE [Concomitant]
  13. ATROPINE [Concomitant]
  14. TIMOLOL MALEATE [Concomitant]
  15. DICLOFENAC SODIUM [Concomitant]

REACTIONS (1)
  - RESPIRATORY ARREST [None]
